FAERS Safety Report 6735965-6 (Version None)
Quarter: 2010Q2

REPORT INFORMATION
  Report Type: 
  Country: None (occurrence: None)
  Receive Date: 20100521
  Receipt Date: 20100514
  Transmission Date: 20101027
  Serious: Yes (Other)
  Sender: FDA-Public Use
  Company Number: B0653831A

PATIENT
  Age: 29 Year
  Sex: Male

DRUGS (1)
  1. SEROXAT [Suspect]
     Indication: DEPRESSION
     Dosage: 10MG PER DAY
     Route: 048
     Dates: start: 20100301, end: 20100514

REACTIONS (5)
  - DISCOMFORT [None]
  - HALLUCINATION [None]
  - TENSION [None]
  - TREMOR [None]
  - VISUAL IMPAIRMENT [None]
